FAERS Safety Report 19115347 (Version 3)
Quarter: 2021Q2

REPORT INFORMATION
  Report Type: Spontaneous
  Country: US (occurrence: US)
  Receive Date: 20210409
  Receipt Date: 20210524
  Transmission Date: 20210717
  Serious: Yes (Hospitalization)
  Sender: FDA-Public Use
  Company Number: US-GLOBAL BLOOD THERAPEUTICS INC-US-GBT-21-01042

PATIENT
  Age: 13 Year
  Sex: Male

DRUGS (8)
  1. OXBRYTA [Suspect]
     Active Substance: VOXELOTOR
     Route: 048
     Dates: start: 202103, end: 2021
  2. OXBRYTA [Suspect]
     Active Substance: VOXELOTOR
     Route: 048
     Dates: start: 2021, end: 20210408
  3. OXBRYTA [Suspect]
     Active Substance: VOXELOTOR
     Indication: SICKLE CELL DISEASE
     Route: 048
     Dates: start: 202102, end: 202103
  4. OXBRYTA [Suspect]
     Active Substance: VOXELOTOR
     Route: 048
     Dates: start: 2021, end: 2021
  5. MOBIC [Concomitant]
     Active Substance: MELOXICAM
     Indication: SICKLE CELL ANAEMIA WITH CRISIS
     Dosage: NOT PROVIDED
  6. HYDROCODONE [Concomitant]
     Active Substance: HYDROCODONE
     Indication: SICKLE CELL ANAEMIA WITH CRISIS
     Dosage: NOT PROVIDED
  7. OXBRYTA [Suspect]
     Active Substance: VOXELOTOR
     Route: 048
     Dates: start: 202103, end: 202103
  8. OXBRYTA [Suspect]
     Active Substance: VOXELOTOR
     Route: 048
     Dates: start: 2021, end: 2021

REACTIONS (11)
  - Nausea [Recovered/Resolved]
  - Product dose omission issue [Unknown]
  - Weight decreased [Recovering/Resolving]
  - Feeling abnormal [Recovered/Resolved]
  - Eczema [Unknown]
  - Urticaria [Unknown]
  - Sickle cell anaemia with crisis [Recovered/Resolved]
  - Migraine [Recovered/Resolved]
  - Off label use [Unknown]
  - Eating disorder [Recovered/Resolved]
  - Vomiting [Recovered/Resolved]

NARRATIVE: CASE EVENT DATE: 2021
